FAERS Safety Report 6564796-5 (Version None)
Quarter: 2010Q1

REPORT INFORMATION
  Report Type: 
  Country: None (occurrence: None)
  Receive Date: 20100201
  Receipt Date: 20100119
  Transmission Date: 20100710
  Serious: Yes (Hospitalization)
  Sender: FDA-Public Use
  Company Number: CA-PFIZER INC-2009184306

PATIENT
  Age: 61 Year
  Sex: Male

DRUGS (15)
  1. PREDNISONE [Suspect]
     Indication: PROSTATE CANCER METASTATIC
     Dosage: 5 MG, 2X/DAY
     Route: 048
     Dates: start: 20090216, end: 20090301
  2. BLINDED *NO SUBJECT DRUG [Suspect]
     Indication: PROSTATE CANCER
     Dosage: 37.5 MG, DAILY
     Dates: start: 20090216, end: 20090306
  3. BLINDED *PLACEBO [Suspect]
     Indication: PROSTATE CANCER
     Dosage: 37.5 MG, DAILY
     Dates: start: 20090216, end: 20090306
  4. BLINDED SUNITINIB MALATE [Suspect]
     Indication: PROSTATE CANCER
     Dosage: 37.5 MG, DAILY
     Dates: start: 20090216, end: 20090306
  5. SUPEUDOL [Concomitant]
     Indication: PAIN
     Dosage: UNK
  6. COLACE [Concomitant]
     Indication: CONSTIPATION
     Dosage: UNK
  7. EFFEXOR XR [Concomitant]
     Indication: HOT FLUSH
     Dosage: UNK
  8. HYDROCHLOROTHIAZIDE [Concomitant]
     Indication: DIURETIC THERAPY
     Dosage: UNK
  9. ASAPHEN [Concomitant]
     Indication: ANTICOAGULANT THERAPY
     Dosage: UNK
  10. DESYREL [Concomitant]
     Indication: SEDATIVE THERAPY
     Dosage: UNK
  11. CRESTOR [Concomitant]
     Indication: HYPERCHOLESTEROLAEMIA
     Dosage: UNK
  12. ZOLADEX [Concomitant]
     Indication: PROSTATE CANCER METASTATIC
     Dosage: UNK
  13. RAVOTRIL [Concomitant]
     Indication: ANXIOLYTIC THERAPY
     Dosage: UNK
  14. ZOMETA [Concomitant]
     Indication: PROPHYLAXIS
     Dosage: UNK
  15. PROCHLORPERAZINE MESILATE [Concomitant]
     Indication: ANTIEMETIC SUPPORTIVE CARE
     Dosage: UNK

REACTIONS (1)
  - CHOLECYSTITIS ACUTE [None]
